FAERS Safety Report 8629439 (Version 2)
Quarter: 2013Q4

REPORT INFORMATION
  Report Type: Spontaneous
  Country: US (occurrence: US)
  Receive Date: 20120622
  Receipt Date: 20131011
  Transmission Date: 20140711
  Serious: Yes (Disabling)
  Sender: FDA-Public Use
  Company Number: US-ASTRAZENECA-2012SE35855

PATIENT
  Sex: Female

DRUGS (3)
  1. NEXIUM [Suspect]
     Route: 048
     Dates: start: 1990, end: 2000
  2. PRILOSEC [Suspect]
     Route: 048
  3. PREVACID [Concomitant]
     Route: 048

REACTIONS (10)
  - Upper limb fracture [Unknown]
  - Foot fracture [Unknown]
  - Ankle fracture [Unknown]
  - Depression [Unknown]
  - Osteoporosis [Unknown]
  - Multiple fractures [Unknown]
  - Cataract [Unknown]
  - Arthritis [Unknown]
  - Glaucoma [Unknown]
  - Vitamin D deficiency [Unknown]
